FAERS Safety Report 19106965 (Version 1)
Quarter: 2021Q2

REPORT INFORMATION
  Report Type: Spontaneous
  Country: US (occurrence: US)
  Receive Date: 20210407
  Receipt Date: 20210407
  Transmission Date: 20210717
  Serious: No
  Sender: FDA-Public Use
  Company Number: None

PATIENT
  Sex: Female

DRUGS (1)
  1. STELARA [Suspect]
     Active Substance: USTEKINUMAB
     Indication: COLITIS
     Dosage: ?          OTHER FREQUENCY:EVERY 8 WEEKS ;?
     Route: 058
     Dates: start: 20210130

REACTIONS (2)
  - Weight fluctuation [None]
  - Abdominal pain [None]
